FAERS Safety Report 14758407 (Version 1)
Quarter: 2018Q2

REPORT INFORMATION
  Report Type: Spontaneous
  Country: US (occurrence: US)
  Receive Date: 20180409
  Receipt Date: 20180409
  Transmission Date: 20180711
  Serious: No
  Sender: FDA-Public Use
  Company Number: None

PATIENT
  Age: 68 Year
  Sex: Female

DRUGS (1)
  1. BUPROPION XL [Suspect]
     Active Substance: BUPROPION
     Route: 048
     Dates: start: 20180209, end: 20180409

REACTIONS (2)
  - Weight increased [None]
  - Product solubility abnormal [None]

NARRATIVE: CASE EVENT DATE: 20180409
